FAERS Safety Report 18217213 (Version 2)
Quarter: 2020Q3

REPORT INFORMATION
  Report Type: Spontaneous
  Country: US (occurrence: US)
  Receive Date: 20200901
  Receipt Date: 20200909
  Transmission Date: 20201103
  Serious: No
  Sender: FDA-Public Use
  Company Number: US-PFIZER INC-2020336167

PATIENT
  Sex: Female

DRUGS (1)
  1. HYDROCORTISONE. [Suspect]
     Active Substance: HYDROCORTISONE
     Indication: BREAST MASS
     Dosage: UNK
     Dates: start: 2017

REACTIONS (3)
  - Off label use [Recovered/Resolved]
  - Feeling abnormal [Recovered/Resolved]
  - Product use in unapproved indication [Recovered/Resolved]
